FAERS Safety Report 13943164 (Version 1)
Quarter: 2017Q3

REPORT INFORMATION
  Report Type: Spontaneous
  Country: US (occurrence: US)
  Receive Date: 20170906
  Receipt Date: 20170906
  Transmission Date: 20171128
  Serious: Yes (Life-Threatening, Hospitalization)
  Sender: FDA-Public Use
  Company Number: US-MYLANLABS-2017M1055080

PATIENT
  Age: 59 Year
  Sex: Female

DRUGS (4)
  1. VANCOMYCIN [Suspect]
     Active Substance: VANCOMYCIN
     Route: 065
  2. VANCOMYCIN [Suspect]
     Active Substance: VANCOMYCIN
     Indication: ABSCESS
     Route: 065
  3. CEFEPIME [Concomitant]
     Active Substance: CEFEPIME HYDROCHLORIDE
     Indication: SEPSIS
     Dosage: UNK
     Route: 065
  4. CEFEPIME [Concomitant]
     Active Substance: CEFEPIME HYDROCHLORIDE
     Indication: ABSCESS
     Dosage: UNK
     Route: 065

REACTIONS (7)
  - Blood lactate dehydrogenase increased [Unknown]
  - Pulmonary haemorrhage [Unknown]
  - Red blood cell schistocytes present [Unknown]
  - Anaemia [Unknown]
  - Immune thrombocytopenic purpura [Recovering/Resolving]
  - Haemorrhage [Unknown]
  - Acute kidney injury [Unknown]
